FAERS Safety Report 5859151-7 (Version None)
Quarter: 2008Q3

REPORT INFORMATION
  Report Type: 
  Country: None (occurrence: None)
  Receive Date: 20080825
  Receipt Date: 20080815
  Transmission Date: 20090109
  Serious: Yes (Hospitalization)
  Sender: FDA-Public Use
  Company Number: 2008JP002194

PATIENT
  Age: 78 Year
  Sex: Male
  Weight: 55 kg

DRUGS (5)
  1. PROGRAF [Suspect]
     Indication: RHEUMATOID ARTHRITIS
     Dosage: 3 MG, UID/QD, ORAL
     Route: 048
     Dates: start: 20061201, end: 20080404
  2. RIMATIL (BUCILLAMINE) TABLET [Concomitant]
  3. LOXONIN (LOXOPROFEN) TABLET [Concomitant]
  4. OMEPRAL TABLET [Concomitant]
  5. MEDROL [Concomitant]

REACTIONS (3)
  - LEUKOENCEPHALOMYELITIS [None]
  - NASOPHARYNGITIS [None]
  - REVERSIBLE POSTERIOR LEUKOENCEPHALOPATHY SYNDROME [None]
